FAERS Safety Report 6962704-6 (Version None)
Quarter: 2010Q3

REPORT INFORMATION
  Report Type: 
  Country: None (occurrence: None)
  Receive Date: 20100902
  Receipt Date: 20100823
  Transmission Date: 20110219
  Serious: Yes (Other)
  Sender: FDA-Public Use
  Company Number: BR-PFIZER INC-2010105962

PATIENT
  Age: 56 Year
  Sex: Female
  Weight: 60 kg

DRUGS (9)
  1. LIPITOR [Suspect]
     Indication: BLOOD CHOLESTEROL INCREASED
     Dosage: AT NIGHT
     Route: 048
     Dates: start: 20100101, end: 20100701
  2. LIPITOR [Suspect]
     Indication: BLOOD TRIGLYCERIDES INCREASED
  3. BENICAR [Concomitant]
     Indication: HYPERTENSION
     Dosage: UNK
     Dates: start: 20090101
  4. ATENOLOL [Concomitant]
     Indication: HYPERTENSION
     Dosage: UNK
     Dates: start: 20090101
  5. LEXOTAN [Concomitant]
     Indication: NERVOUSNESS
     Dosage: UNK
  6. LEXOTAN [Concomitant]
     Indication: BLOOD PRESSURE INCREASED
  7. LEXOTAN [Concomitant]
     Indication: SLEEP DISORDER
  8. CITALOPRAM [Concomitant]
     Indication: PANIC DISORDER
     Dosage: UNK
  9. CITALOPRAM [Concomitant]
     Indication: DEPRESSION

REACTIONS (8)
  - ABDOMINAL DISCOMFORT [None]
  - BLOOD CHOLESTEROL INCREASED [None]
  - BLOOD PRESSURE INCREASED [None]
  - BLOOD TRIGLYCERIDES INCREASED [None]
  - FLATULENCE [None]
  - HYPOPHAGIA [None]
  - MALAISE [None]
  - WEIGHT INCREASED [None]
